FAERS Safety Report 7433912-5 (Version None)
Quarter: 2011Q2

REPORT INFORMATION
  Report Type: 
  Country: None (occurrence: None)
  Receive Date: 20110420
  Receipt Date: 20110420
  Transmission Date: 20111010
  Serious: Yes (Hospitalization)
  Sender: FDA-Public Use
  Company Number: None

PATIENT
  Age: 83 Year
  Sex: Female
  Weight: 61.1 kg

DRUGS (10)
  1. COLACE [Concomitant]
  2. DIGOXIN [Concomitant]
  3. FLUCONAZOLE [Concomitant]
  4. METAROLOL [Concomitant]
  5. CEFDINIR [Concomitant]
  6. DECITABINE 0.2MG/KG 3W/WK [Suspect]
     Indication: MYELODYSPLASTIC SYNDROME
     Dosage: 20.15MG 1X/WK SUB-Q INJ.
     Route: 058
  7. BA/BICARB [Concomitant]
  8. VANCOMYCIN [Concomitant]
  9. HYDREA [Concomitant]
  10. DECITABINE 0.15MG/KG 1-2X/WK [Suspect]

REACTIONS (4)
  - CELLULITIS [None]
  - OSTEOARTHRITIS [None]
  - THROMBOPHLEBITIS SUPERFICIAL [None]
  - MUSCULOSKELETAL PAIN [None]
